FAERS Safety Report 7996393-9 (Version None)
Quarter: 2011Q4

REPORT INFORMATION
  Report Type: 
  Country: None (occurrence: None)
  Receive Date: 20111220
  Receipt Date: 20111214
  Transmission Date: 20120403
  Serious: Yes (Hospitalization, Other)
  Sender: FDA-Public Use
  Company Number: GB-MERCK-1112GBR00040

PATIENT
  Age: 72 Year
  Sex: Female
  Weight: 55 kg

DRUGS (7)
  1. AMITRIPTYLINE HYDROCHLORIDE [Concomitant]
     Route: 065
  2. SIMVASTATIN [Concomitant]
     Route: 048
  3. FOSAMAX [Suspect]
     Indication: PROPHYLAXIS
     Route: 048
     Dates: start: 20081201
  4. LEVOTHYROXINE SODIUM [Concomitant]
     Route: 065
  5. BENDROFLUMETHIAZIDE [Concomitant]
     Route: 065
  6. CANDESARTAN [Concomitant]
     Route: 065
  7. DICLOFENAC SODIUM AND MISOPROSTOL [Concomitant]
     Route: 065

REACTIONS (1)
  - FEMUR FRACTURE [None]
